FAERS Safety Report 14484319 (Version 2)
Quarter: 2018Q1

REPORT INFORMATION
  Report Type: Spontaneous
  Country: US (occurrence: US)
  Receive Date: 20180205
  Receipt Date: 20180327
  Transmission Date: 20180509
  Serious: Yes (Other)
  Sender: FDA-Public Use
  Company Number: US-SUN PHARMACEUTICAL INDUSTRIES LTD-2017US-156322

PATIENT
  Age: 21 Year
  Sex: Male

DRUGS (1)
  1. DIPHENHYDRAMINE. [Suspect]
     Active Substance: DIPHENHYDRAMINE
     Indication: PRODUCT USED FOR UNKNOWN INDICATION
     Dosage: UNK
     Route: 065

REACTIONS (19)
  - Dysphonia [Unknown]
  - Psychotic disorder [Unknown]
  - Mydriasis [Recovering/Resolving]
  - Flushing [Unknown]
  - Reduced facial expression [Unknown]
  - Hypokinesia [Unknown]
  - Drug withdrawal syndrome [Unknown]
  - Postural tremor [Recovering/Resolving]
  - Mental status changes [Unknown]
  - Dysarthria [Unknown]
  - Staring [Unknown]
  - Psychomotor hyperactivity [Unknown]
  - Gaze palsy [Recovering/Resolving]
  - Sinus tachycardia [Recovering/Resolving]
  - Drug abuse [Unknown]
  - Tremor [Recovering/Resolving]
  - Muscle rigidity [Recovering/Resolving]
  - Salivary hypersecretion [Unknown]
  - Hyperhidrosis [Unknown]
